FAERS Safety Report 7485832-8 (Version None)
Quarter: 2011Q2

REPORT INFORMATION
  Report Type: 
  Country: None (occurrence: None)
  Receive Date: 20110509
  Receipt Date: 20110425
  Transmission Date: 20111010
  Serious: Yes (Life-Threatening, Hospitalization)
  Sender: FDA-Public Use
  Company Number: DSA_45514_2011

PATIENT
  Age: 60 Year
  Sex: Male

DRUGS (5)
  1. NITROGLYCERIN [Concomitant]
  2. DILTIAZEM HCL [Suspect]
     Indication: ISCHAEMIC CARDIOMYOPATHY
     Dosage: (200 MG QD ORAL)
     Route: 048
     Dates: start: 20061101, end: 20080819
  3. NORVASC [Suspect]
     Indication: HYPERTENSION
     Dosage: (5 MG,QD ORAL)
     Route: 048
     Dates: start: 20061101
  4. ASPIRIN [Concomitant]
  5. SIMVASTATIN [Concomitant]

REACTIONS (3)
  - SYNCOPE [None]
  - DRUG INTERACTION [None]
  - NODAL RHYTHM [None]
